FAERS Safety Report 4967585-8 (Version None)
Quarter: 2006Q2

REPORT INFORMATION
  Report Type: 
  Country: None (occurrence: None)
  Receive Date: 20060407
  Receipt Date: 20060407
  Transmission Date: 20061013
  Serious: Yes (Disabling)
  Sender: FDA-Public Use
  Company Number: None

PATIENT
  Age: 40 Year
  Sex: Male
  Weight: 109 kg

DRUGS (16)
  1. BYETTA [Suspect]
     Indication: DIABETES MELLITUS
     Dosage: 5 MCG   ONCE   SQ
     Route: 058
     Dates: start: 20051010, end: 20051010
  2. WARFARIN [Concomitant]
  3. CALCIUM POLYCARBOPHIL [Concomitant]
  4. EXCITALOPRAM [Concomitant]
  5. FAMOTIDINE [Concomitant]
  6. FERROUS GLUCONATE [Concomitant]
  7. FLUCONAZOLE [Concomitant]
  8. HYDROCHLOROTHIAZIDE [Concomitant]
  9. IMIPRAMINE [Concomitant]
  10. INSULIN [Concomitant]
  11. LEVOFLOXACIN [Concomitant]
  12. METOPROLOL [Concomitant]
  13. MIRTAZAPINE [Concomitant]
  14. MULTI-VITAMIN [Concomitant]
  15. PIPERACILLIN AND TAZOBACTAM [Concomitant]
  16. SENNA [Concomitant]

REACTIONS (3)
  - BLOOD PRESSURE INCREASED [None]
  - HYPERHIDROSIS [None]
  - NAUSEA [None]
